FAERS Safety Report 17171491 (Version 1)
Quarter: 2019Q4

REPORT INFORMATION
  Report Type: Spontaneous
  Country: ES (occurrence: ES)
  Receive Date: 20191218
  Receipt Date: 20191218
  Transmission Date: 20200122
  Serious: Yes (Hospitalization)
  Sender: FDA-Public Use
  Company Number: ES-ALLERGAN-1951249US

PATIENT
  Sex: Female

DRUGS (1)
  1. DEX UNK [Suspect]
     Active Substance: UNSPECIFIED INGREDIENT
     Indication: PRODUCT USED FOR UNKNOWN INDICATION
     Route: 065
     Dates: start: 20181128, end: 20181222

REACTIONS (1)
  - Substance-induced psychotic disorder [Recovering/Resolving]

NARRATIVE: CASE EVENT DATE: 20181218
